FAERS Safety Report 5571897-7 (Version None)
Quarter: 2007Q4

REPORT INFORMATION
  Report Type: 
  Country: None (occurrence: None)
  Receive Date: 20071221
  Receipt Date: 20071213
  Transmission Date: 20080405
  Serious: Yes (Life-Threatening, Hospitalization)
  Sender: FDA-Public Use
  Company Number: CH-ABBOTT-07P-151-0429876-00

PATIENT
  Sex: Male

DRUGS (7)
  1. KALETRA [Suspect]
     Indication: HIV INFECTION
     Route: 048
  2. VINBLASTINE SULFATE [Interacting]
     Indication: HODGKIN'S DISEASE
     Dates: start: 20071001
  3. DOXORUBICIN HCL [Suspect]
     Indication: HODGKIN'S DISEASE
     Dates: start: 20071001, end: 20071001
  4. DACARBAZINE [Interacting]
     Indication: HODGKIN'S DISEASE
     Dates: start: 20071001, end: 20071001
  5. TENOFOVIR DISOPROXIL FUMARATE [Concomitant]
     Indication: HIV INFECTION
     Route: 048
  6. NEVIRAPINE [Concomitant]
     Indication: HIV INFECTION
     Route: 048
  7. BLEOMYCIN [Concomitant]
     Indication: HODGKIN'S DISEASE
     Dates: start: 20071001

REACTIONS (5)
  - AGRANULOCYTOSIS [None]
  - DRUG INTERACTION [None]
  - DRUG LEVEL INCREASED [None]
  - MUCOSAL INFLAMMATION [None]
  - PYREXIA [None]
